FAERS Safety Report 15458742 (Version 1)
Quarter: 2018Q4

REPORT INFORMATION
  Report Type: Spontaneous
  Country: SE (occurrence: SE)
  Receive Date: 20181003
  Receipt Date: 20181003
  Transmission Date: 20190204
  Serious: Yes (Hospitalization)
  Sender: FDA-Public Use
  Company Number: SE-TEVA-2018-SE-960163

PATIENT
  Age: 58 Year
  Sex: Female

DRUGS (13)
  1. BUFOMIX EASYHALER [Concomitant]
     Active Substance: BUDESONIDE\FORMOTEROL FUMARATE
  2. EMOVAT [Concomitant]
  3. ZARZIO [Concomitant]
     Active Substance: FILGRASTIM
     Dosage: I ANSLUTNING TILL CYTOSTATIKABEHANDLING.
  4. OXYNORM [Concomitant]
     Active Substance: OXYCODONE HYDROCHLORIDE
  5. ALVEDON [Concomitant]
     Active Substance: ACETAMINOPHEN
  6. ZOLEDRONSYRA [Concomitant]
     Route: 042
  7. IPREN [Concomitant]
     Active Substance: IBUPROFEN
  8. DOCETAXEL. [Suspect]
     Active Substance: DOCETAXEL
     Indication: BREAST CANCER
     Route: 042
     Dates: start: 201808
  9. BETAPRED [Concomitant]
     Active Substance: BETAMETHASONE SODIUM PHOSPHATE
     Dosage: I ANSLUTNING TILL CYTOSTATIKABEHANDLING.
  10. OMEPRAZOL [Concomitant]
     Active Substance: OMEPRAZOLE
  11. PRAMIPEXOL [Concomitant]
     Active Substance: PRAMIPEXOLE
  12. STILNOCT [Concomitant]
     Active Substance: ZOLPIDEM TARTRATE
  13. PRIMPERAN [Concomitant]
     Active Substance: METOCLOPRAMIDE HYDROCHLORIDE

REACTIONS (2)
  - Rash [Recovered/Resolved]
  - Bone marrow toxicity [Recovered/Resolved]

NARRATIVE: CASE EVENT DATE: 20180813
